FAERS Safety Report 25488529 (Version 1)
Quarter: 2025Q2

REPORT INFORMATION
  Report Type: Spontaneous
  Country: US (occurrence: US)
  Receive Date: 20250627
  Receipt Date: 20250627
  Transmission Date: 20250717
  Serious: Yes (Hospitalization, Disabling, Other)
  Sender: SPRINGWORKS THERAPEUTIC
  Company Number: US-SPRINGWORKS THERAPEUTICS-SW-002515

PATIENT
  Age: 16 Year
  Sex: Male
  Weight: 77.098 kg

DRUGS (2)
  1. OGSIVEO [Suspect]
     Active Substance: NIROGACESTAT HYDROBROMIDE
     Indication: Desmoid tumour
     Dosage: 150 MILLIGRAM, BID
     Dates: start: 202403
  2. DOXYCYCLINE [Concomitant]
     Active Substance: DOXYCYCLINE
     Indication: Product used for unknown indication

REACTIONS (9)
  - Epiphyseal fracture [Unknown]
  - Ankle fracture [Unknown]
  - Osteopenia [Unknown]
  - Scoliosis [Unknown]
  - Femur fracture [Unknown]
  - Wrist fracture [Unknown]
  - Upper limb fracture [Unknown]
  - Diarrhoea [Unknown]
  - Off label use [Unknown]

NARRATIVE: CASE EVENT DATE: 20250312
